FAERS Safety Report 24190925 (Version 3)
Quarter: 2024Q3

REPORT INFORMATION
  Report Type: Report from Study
  Country: US (occurrence: US)
  Receive Date: 20240808
  Receipt Date: 20240828
  Transmission Date: 20241017
  Serious: Yes (Hospitalization)
  Sender: EISAI
  Company Number: US-Eisai-EC-2024-171111

PATIENT
  Age: 62 Year
  Sex: Female
  Weight: 90.7 kg

DRUGS (3)
  1. LENVIMA [Suspect]
     Active Substance: LENVATINIB
     Indication: Renal cancer
     Dosage: HELD FOR 2 DAYS
     Route: 048
     Dates: start: 20240722
  2. LENVIMA [Suspect]
     Active Substance: LENVATINIB
     Dosage: HELD FOR 2 DAYS
     Route: 048
     Dates: start: 202408
  3. EVEROLIMUS [Concomitant]
     Active Substance: EVEROLIMUS
     Indication: Renal cell carcinoma
     Dates: start: 20240722, end: 2024

REACTIONS (5)
  - Vomiting [Recovering/Resolving]
  - Eructation [Not Recovered/Not Resolved]
  - Asthenia [Recovering/Resolving]
  - Gait inability [Recovering/Resolving]
  - Memory impairment [Not Recovered/Not Resolved]

NARRATIVE: CASE EVENT DATE: 20240101
